FAERS Safety Report 25713865 (Version 1)
Quarter: 2025Q3

REPORT INFORMATION
  Report Type: Report from Study
  Country: EU (occurrence: EU)
  Receive Date: 20250822
  Receipt Date: 20250822
  Transmission Date: 20251020
  Serious: Yes (Hospitalization)
  Sender: ABBVIE
  Company Number: EU-ABBVIE-6411743

PATIENT
  Sex: Female

DRUGS (1)
  1. FOSCARBIDOPA\FOSLEVODOPA [Suspect]
     Active Substance: FOSCARBIDOPA\FOSLEVODOPA
     Indication: Parkinson^s disease
     Route: 058
     Dates: start: 20240212

REACTIONS (7)
  - Urinary tract infection [Recovering/Resolving]
  - Infusion site inflammation [Recovered/Resolved]
  - Infusion site pain [Not Recovered/Not Resolved]
  - Device kink [Recovered/Resolved]
  - Device use error [Recovered/Resolved]
  - Device issue [Recovered/Resolved]
  - Sepsis [Recovering/Resolving]
